FAERS Safety Report 19042386 (Version 1)
Quarter: 2021Q1

REPORT INFORMATION
  Report Type: Spontaneous
  Country: FR (occurrence: FR)
  Receive Date: 20210323
  Receipt Date: 20210323
  Transmission Date: 20210420
  Serious: Yes (Hospitalization)
  Sender: FDA-Public Use
  Company Number: FR-TEVA-2021-FR-1893040

PATIENT
  Age: 45 Year
  Sex: Female

DRUGS (1)
  1. OLANZAPINE. [Suspect]
     Active Substance: OLANZAPINE
     Indication: SCHIZOPHRENIA
     Dosage: UNIT DOSE: 30 MILLIGRAM
     Route: 048
     Dates: start: 2018

REACTIONS (1)
  - Diabetes mellitus [Recovered/Resolved with Sequelae]

NARRATIVE: CASE EVENT DATE: 20201112
